FAERS Safety Report 8611882-1 (Version None)
Quarter: 2012Q3

REPORT INFORMATION
  Report Type: 
  Country: None (occurrence: None)
  Receive Date: 20120822
  Receipt Date: 20120813
  Transmission Date: 20120928
  Serious: Yes (Other)
  Sender: FDA-Public Use
  Company Number: US-ASTRAZENECA-2012SE60228

PATIENT
  Age: 65 Year
  Sex: Male

DRUGS (1)
  1. TOPROL-XL [Suspect]
     Route: 048

REACTIONS (1)
  - RECURRENT CANCER [None]
